FAERS Safety Report 19169047 (Version 3)
Quarter: 2023Q1

REPORT INFORMATION
  Report Type: Spontaneous
  Country: US (occurrence: US)
  Receive Date: 20210422
  Receipt Date: 20230330
  Transmission Date: 20230417
  Serious: Yes (Disabling, Other)
  Sender: FDA-Public Use
  Company Number: US-AMERICAN REGENT INC-2021000968

PATIENT
  Age: 36 Year
  Sex: Female
  Weight: 77.7 kg

DRUGS (10)
  1. FERRIC CARBOXYMALTOSE [Suspect]
     Active Substance: FERRIC CARBOXYMALTOSE
     Indication: Iron deficiency anaemia
     Dosage: 750 MILLIGRAM IN 100 MLS 0.9% SODIUM CHLORIDE
     Route: 042
     Dates: start: 20190315, end: 20190315
  2. FERRIC CARBOXYMALTOSE [Suspect]
     Active Substance: FERRIC CARBOXYMALTOSE
     Dosage: 750 MILLIGRAM IN 100 MLS 0.9% SODIUM CHLORIDE
     Dates: start: 20190322, end: 20190322
  3. AMBIEN [Concomitant]
     Active Substance: ZOLPIDEM TARTRATE
     Indication: Insomnia
     Dosage: 5 MILLIGRAM, 1 TAB, PO BEDTIME
     Route: 048
  4. CLARITIN                           /00413701/ [Concomitant]
     Indication: Product used for unknown indication
     Dosage: 10 MILLIGRAM,, 1 TAB, PO, DAILY, PRN
     Route: 048
  5. COLACE [Concomitant]
     Active Substance: DOCUSATE SODIUM
     Indication: Constipation
     Dosage: 100 MILLIGRAM, 1 CAP, PO, 2X DAILY, PRN
     Route: 048
  6. HYDROXYZINE [Concomitant]
     Active Substance: HYDROXYZINE HYDROCHLORIDE
     Indication: Anxiety
     Dosage: 25 MILLIGRAM, 1 TAB, PO, QID, PRN
     Route: 048
  7. MECLIZINE                          /00072801/ [Concomitant]
     Indication: Product used for unknown indication
     Dosage: 25 MILLIGRAM, 1 TAB PO, TID PRN
     Route: 048
  8. MELOXICAM [Concomitant]
     Active Substance: MELOXICAM
     Indication: Product used for unknown indication
     Dosage: 15 MILLIGRAM, 1 TAB PO, QD
     Route: 048
  9. RANITIDINE [Concomitant]
     Active Substance: RANITIDINE
     Indication: Product used for unknown indication
     Dosage: 150 MILLIGRAM, 1 TAB, PO, BID
     Route: 048
  10. ZANAFLEX [Concomitant]
     Active Substance: TIZANIDINE HYDROCHLORIDE
     Indication: Muscle spasms
     Dosage: 8 MG, 2 TAB, PO Q8H PRN
     Route: 048

REACTIONS (13)
  - Feeling abnormal [Not Recovered/Not Resolved]
  - Musculoskeletal chest pain [Not Recovered/Not Resolved]
  - Pelvic pain [Not Recovered/Not Resolved]
  - Pain [Not Recovered/Not Resolved]
  - Hypophosphataemia [Recovered/Resolved]
  - Urticaria [Unknown]
  - Pruritus [Unknown]
  - Arthralgia [Not Recovered/Not Resolved]
  - Back pain [Not Recovered/Not Resolved]
  - Anhedonia [Not Recovered/Not Resolved]
  - Emotional distress [Not Recovered/Not Resolved]
  - Anxiety [Recovered/Resolved]
  - Product quality issue [Unknown]

NARRATIVE: CASE EVENT DATE: 20190322
